FAERS Safety Report 9648465 (Version 1)
Quarter: 2013Q4

REPORT INFORMATION
  Report Type: Spontaneous
  Country: US (occurrence: None)
  Receive Date: 20131024
  Receipt Date: 20131024
  Transmission Date: 20140711
  Serious: No
  Sender: FDA-Public Use
  Company Number: CC 13-0955

PATIENT
  Age: 39 Year
  Sex: Female

DRUGS (1)
  1. ERYTHROMYCIN AND BENZOYL PEROXIDE [Suspect]
     Indication: ACNE
     Route: 061
     Dates: start: 20130705

REACTIONS (1)
  - Drug ineffective [None]
